FAERS Safety Report 8929901 (Version 2)
Quarter: 2013Q1

REPORT INFORMATION
  Report Type: Spontaneous
  Country: CO (occurrence: CO)
  Receive Date: 20121128
  Receipt Date: 20130108
  Transmission Date: 20140127
  Serious: Yes (Death, Other)
  Sender: FDA-Public Use
  Company Number: CO-ROCHE-1161242

PATIENT
  Sex: Male
  Weight: 60 kg

DRUGS (4)
  1. LUCENTIS [Suspect]
     Indication: VISUAL IMPAIRMENT
     Route: 050
     Dates: start: 20120710
  2. LUCENTIS [Suspect]
     Route: 050
     Dates: start: 20120910
  3. LOSARTAN [Concomitant]
     Indication: HYPERTENSION
  4. NIFEDIPINE [Concomitant]
     Indication: HYPERTENSION

REACTIONS (2)
  - Diabetic coma [Fatal]
  - Cerebral ischaemia [Unknown]
